FAERS Safety Report 20059244 (Version 1)
Quarter: 2021Q4

REPORT INFORMATION
  Report Type: Spontaneous
  Country: FI (occurrence: FI)
  Receive Date: 20211111
  Receipt Date: 20211111
  Transmission Date: 20220303
  Serious: Yes (Life-Threatening)
  Sender: FDA-Public Use
  Company Number: None

PATIENT
  Age: 80 Year
  Sex: Female

DRUGS (1)
  1. TERBINAFINE [Suspect]
     Active Substance: TERBINAFINE
     Indication: Fungal skin infection
     Dosage: 250 MG, QD
     Route: 048
     Dates: start: 20210916, end: 20211015

REACTIONS (3)
  - Myocardial ischaemia [Recovering/Resolving]
  - Atrial fibrillation [Recovering/Resolving]
  - Neutropenic infection [Recovering/Resolving]

NARRATIVE: CASE EVENT DATE: 20211001
